FAERS Safety Report 22068154 (Version 1)
Quarter: 2023Q1

REPORT INFORMATION
  Report Type: Spontaneous
  Country: US (occurrence: US)
  Receive Date: 20230307
  Receipt Date: 20230307
  Transmission Date: 20230418
  Serious: No
  Sender: FDA-Public Use
  Company Number: US-GLAXOSMITHKLINE-USCH2023AMR009810

PATIENT
  Sex: Female

DRUGS (3)
  1. ADVIL [Suspect]
     Active Substance: IBUPROFEN
     Indication: Pain
     Dosage: UNK
  2. SHINGRIX [Suspect]
     Active Substance: RECOMBINANT VARICELLA ZOSTER VIRUS (VZV) GLYCOPROTEIN E
     Indication: Product used for unknown indication
     Dosage: UNK
     Dates: start: 20230227
  3. TYLENOL [Suspect]
     Active Substance: ACETAMINOPHEN
     Indication: Pain
     Dosage: UNK

REACTIONS (1)
  - Drug effect less than expected [Unknown]
